FAERS Safety Report 6376192-4 (Version None)
Quarter: 2009Q3

REPORT INFORMATION
  Report Type: 
  Country: None (occurrence: None)
  Receive Date: 20090918
  Receipt Date: 20090909
  Transmission Date: 20100115
  Serious: Yes (Other)
  Sender: FDA-Public Use
  Company Number: 2009EU003363

PATIENT
  Age: 56 Year
  Sex: Male
  Weight: 81 kg

DRUGS (6)
  1. PROGRAF [Suspect]
     Indication: RENAL TRANSPLANT
     Dosage: 2.5 MB,BID, ORAL
     Route: 048
     Dates: start: 20070628, end: 20090901
  2. CELLCEPT [Suspect]
     Indication: RENAL TRANSPLANT
     Dosage: /D; ORAL
     Route: 048
     Dates: end: 20080101
  3. PREDNISOLONE [Suspect]
     Indication: RENAL TRANSPLANT
     Dosage: 5 MG,  /D, ORAL
     Route: 048
     Dates: start: 20080601
  4. TAHOR [Concomitant]
  5. INEXIUM (ESOMEPRAZOLE SODIUM) [Concomitant]
  6. ALLOPURINOL [Concomitant]

REACTIONS (2)
  - LEUKOPENIA [None]
  - RETINAL VEIN OCCLUSION [None]
